FAERS Safety Report 8480927-4 (Version None)
Quarter: 2012Q3

REPORT INFORMATION
  Report Type: 
  Country: None (occurrence: None)
  Receive Date: 20120702
  Receipt Date: 20120621
  Transmission Date: 20120928
  Serious: Yes (Hospitalization)
  Sender: FDA-Public Use
  Company Number: US-BAYER-2012-018979

PATIENT
  Age: 21 Year
  Sex: Female
  Weight: 82.993 kg

DRUGS (10)
  1. YASMIN [Suspect]
     Indication: MENSTRUAL DISORDER
  2. DROSPIRENONE AND ETHINYL ESTRADIOL [Suspect]
     Indication: CONTRACEPTION
     Dosage: UNK
     Route: 048
     Dates: start: 20080101, end: 20090101
  3. NEXIUM [Concomitant]
     Dosage: UNK
  4. TAGAMET [Concomitant]
     Dosage: UNK
     Dates: start: 20060505
  5. BACTRIM [Concomitant]
     Dosage: UNK
     Dates: start: 20060505, end: 20060507
  6. PEPCID [Concomitant]
     Dosage: UNK
  7. VICODIN [Concomitant]
     Dosage: UNK
  8. ACETAMINOPHEN [Concomitant]
     Dosage: UNK
  9. YASMIN [Suspect]
     Indication: CONTRACEPTION
     Dosage: UNK
     Route: 048
     Dates: start: 20030101, end: 20070101
  10. DARVOCET [Concomitant]
     Dosage: UNK
     Dates: start: 20060505, end: 20060507

REACTIONS (5)
  - BACK PAIN [None]
  - CHOLECYSTITIS [None]
  - INJURY [None]
  - PAIN [None]
  - ABDOMINAL PAIN UPPER [None]
